FAERS Safety Report 7524564-4 (Version None)
Quarter: 2011Q2

REPORT INFORMATION
  Report Type: 
  Country: None (occurrence: None)
  Receive Date: 20110601
  Receipt Date: 20110601
  Transmission Date: 20111010
  Serious: Yes (Death)
  Sender: FDA-Public Use
  Company Number: None

PATIENT
  Age: 79 Year
  Sex: Male

DRUGS (1)
  1. TIKOSYN [Suspect]
     Dosage: 250MCG BID ORAL
     Route: 048
     Dates: start: 20080511, end: 20110125

REACTIONS (1)
  - DEATH [None]
